FAERS Safety Report 20568107 (Version 1)
Quarter: 2022Q1

REPORT INFORMATION
  Report Type: Spontaneous
  Country: None (occurrence: US)
  Receive Date: 20220308
  Receipt Date: 20220308
  Transmission Date: 20220424
  Serious: No
  Sender: FDA-Public Use
  Company Number: US-Breckenridge Pharmaceutical, Inc.-2126572

PATIENT
  Age: 22 Year
  Sex: Male
  Weight: 86.364 kg

DRUGS (1)
  1. ASENAPINE [Suspect]
     Active Substance: ASENAPINE
     Indication: Schizophrenia
     Route: 060

REACTIONS (2)
  - Therapeutic product ineffective [Unknown]
  - Product residue present [Unknown]
